FAERS Safety Report 5882998-8 (Version None)
Quarter: 2008Q3

REPORT INFORMATION
  Report Type: 
  Country: None (occurrence: None)
  Receive Date: 20080913
  Receipt Date: 20080825
  Transmission Date: 20090109
  Serious: No
  Sender: FDA-Public Use
  Company Number: US-ABBOTT-08P-163-0472276-00

PATIENT
  Sex: Female

DRUGS (1)
  1. HUMIRA [Suspect]
     Indication: RHEUMATOID ARTHRITIS
     Dates: start: 20070101

REACTIONS (4)
  - ACCIDENTAL EXPOSURE [None]
  - GAIT DISTURBANCE [None]
  - JOINT SWELLING [None]
  - RHEUMATOID ARTHRITIS [None]
